FAERS Safety Report 13340118 (Version 1)
Quarter: 2017Q1

REPORT INFORMATION
  Report Type: Spontaneous
  Country: CZ (occurrence: CZ)
  Receive Date: 20170316
  Receipt Date: 20170316
  Transmission Date: 20170428
  Serious: Yes (Life-Threatening, Hospitalization)
  Sender: FDA-Public Use
  Company Number: CZ-ROCHE-1907229

PATIENT
  Age: 45 Year
  Sex: Female
  Weight: 90 kg

DRUGS (3)
  1. KYTRIL [Concomitant]
     Active Substance: GRANISETRON HYDROCHLORIDE
     Indication: PROPHYLAXIS OF NAUSEA AND VOMITING
     Route: 042
  2. KADCYLA [Suspect]
     Active Substance: ADO-TRASTUZUMAB EMTANSINE
     Indication: HER-2 POSITIVE BREAST CANCER
     Route: 042
     Dates: start: 20170112, end: 20170112
  3. DEXAMED (CZECH REPUBLIC) [Concomitant]
     Indication: PROPHYLAXIS OF NAUSEA AND VOMITING
     Route: 065

REACTIONS (7)
  - Loss of consciousness [Recovered/Resolved]
  - Hypersensitivity [Recovered/Resolved]
  - Hyperhidrosis [Recovered/Resolved]
  - Enuresis [Recovered/Resolved]
  - Abdominal discomfort [Recovered/Resolved]
  - Urinary straining [Recovered/Resolved]
  - Peripheral pulse decreased [Recovered/Resolved]

NARRATIVE: CASE EVENT DATE: 20170112
